FAERS Safety Report 6402675-4 (Version None)
Quarter: 2009Q4

REPORT INFORMATION
  Report Type: 
  Country: None (occurrence: None)
  Receive Date: 20091009
  Receipt Date: 20090930
  Transmission Date: 20100525
  Serious: Yes (Hospitalization, Disabling)
  Sender: FDA-Public Use
  Company Number: ADR34192009

PATIENT
  Age: 75 Year
  Sex: Female

DRUGS (5)
  1. CIPROFLOXACIN [Suspect]
     Dosage: 1.5 G, ORAL
     Route: 048
     Dates: start: 20070720, end: 20070720
  2. CARBOCISTEINE [Concomitant]
  3. ALBUTEROL [Concomitant]
  4. SERETIDE (FLUTICASONE, SALMETEROL) [Concomitant]
  5. TIOTROPIUM [Concomitant]

REACTIONS (6)
  - CHEST PAIN [None]
  - CONFUSIONAL STATE [None]
  - DYSPNOEA [None]
  - HEADACHE [None]
  - PYREXIA [None]
  - SINUS TACHYCARDIA [None]
